FAERS Safety Report 9537420 (Version 1)
Quarter: 2013Q3

REPORT INFORMATION
  Report Type: Spontaneous
  Country: US (occurrence: None)
  Receive Date: 20130918
  Receipt Date: 20130918
  Transmission Date: 20140515
  Serious: Yes (Disabling)
  Sender: FDA-Public Use
  Company Number: None

PATIENT
  Age: 65 Year
  Sex: Male
  Weight: 92.99 kg

DRUGS (1)
  1. ANDROGEL [Suspect]
     Indication: BLOOD TESTOSTERONE DECREASED
     Dosage: 2 PUMPS ONCE DAILY APPLIED TO A SURFACE USUALLY THE SKIN
     Dates: start: 20120415, end: 20120612

REACTIONS (4)
  - Local swelling [None]
  - Joint swelling [None]
  - Gait disturbance [None]
  - Rheumatoid arthritis [None]
